FAERS Safety Report 23426105 (Version 9)
Quarter: 2024Q2

REPORT INFORMATION
  Report Type: Report from Study
  Country: IE (occurrence: IE)
  Receive Date: 20240122
  Receipt Date: 20240627
  Transmission Date: 20240717
  Serious: Yes (Hospitalization)
  Sender: FDA-Public Use
  Company Number: IE-ABBVIE-5472124

PATIENT
  Age: 42 Year
  Sex: Male

DRUGS (26)
  1. CARBIDOPA\LEVODOPA [Suspect]
     Active Substance: CARBIDOPA\LEVODOPA
     Indication: Parkinson^s disease
     Dosage: 1 CASSETTE?FREQUENCY TEXT: CONTINUOUS
     Route: 050
     Dates: start: 20220921, end: 20221006
  2. CARBIDOPA\LEVODOPA [Suspect]
     Active Substance: CARBIDOPA\LEVODOPA
     Dosage: 1 CASSETTE?FREQUENCY TEXT: CONTINUOUS
     Route: 050
     Dates: start: 20221006
  3. CARBIDOPA\LEVODOPA [Suspect]
     Active Substance: CARBIDOPA\LEVODOPA
     Dosage: 3.7 EVERY HOUR, 7.5 FOR MORNING DOSE?FREQUENCY TEXT: CONTINUOUS
     Route: 050
     Dates: start: 2023, end: 2023
  4. CARBIDOPA\LEVODOPA [Suspect]
     Active Substance: CARBIDOPA\LEVODOPA
     Dosage: FREQUENCY TEXT: CONTINUOUS DOSE 3.9ML/PH?INCREASED DOSE SLIGHTLY
     Route: 050
     Dates: start: 2023
  5. CARBIDOPA\LEVODOPA [Suspect]
     Active Substance: CARBIDOPA\LEVODOPA
     Dosage: INCREASED DOSE SLIGHTLY
     Route: 050
     Dates: end: 20240129
  6. CARBIDOPA\LEVODOPA [Suspect]
     Active Substance: CARBIDOPA\LEVODOPA
     Dosage: FREQUENCY TEXT: CONTINUOUS RATE 4.1ML/HOUR
     Route: 050
     Dates: start: 2024, end: 2024
  7. CARBIDOPA\LEVODOPA [Suspect]
     Active Substance: CARBIDOPA\LEVODOPA
     Dosage: INCREASE CONTINUOUS RATE TO 4.4ML/HR
     Route: 050
     Dates: start: 2024, end: 2024
  8. CARBIDOPA\LEVODOPA [Suspect]
     Active Substance: CARBIDOPA\LEVODOPA
     Dosage: LL2 PUMP APPLIED AND EXTRA DOSE 1.5ML HAS 12HR LOCK OUT, CD: 4.5ML/PHR, MD: 7.5ML?INCREASED DOSE ...
     Route: 050
     Dates: start: 2024, end: 2024
  9. CARBIDOPA\LEVODOPA [Suspect]
     Active Substance: CARBIDOPA\LEVODOPA
     Dosage: CONTINUOUS RATE 4.3ML/HR
     Route: 050
     Dates: start: 2024
  10. CARBIDOPA\LEVODOPA [Suspect]
     Active Substance: CARBIDOPA\LEVODOPA
     Dosage: CONTINUOUS DOSE 4ML/HOUR, LAST ADMIN DATE 2024
     Route: 050
     Dates: start: 20240129
  11. BENSERAZIDE HYDROCHLORIDE\LEVODOPA [Suspect]
     Active Substance: BENSERAZIDE HYDROCHLORIDE\LEVODOPA
     Indication: Product used for unknown indication
     Route: 048
  12. BENSERAZIDE HYDROCHLORIDE\LEVODOPA [Suspect]
     Active Substance: BENSERAZIDE HYDROCHLORIDE\LEVODOPA
     Indication: Product used for unknown indication
     Dosage: TIME INTERVAL: 0.16666667 DAYS: UPTO 6 MADOPAR?DOSE INCREASED
     Route: 048
  13. BENSERAZIDE HYDROCHLORIDE\LEVODOPA [Suspect]
     Active Substance: BENSERAZIDE HYDROCHLORIDE\LEVODOPA
     Indication: Product used for unknown indication
     Dosage: APPROXIMATELY 3 MADOPAR IN THE DAY
     Route: 048
  14. BENSERAZIDE HYDROCHLORIDE\LEVODOPA [Suspect]
     Active Substance: BENSERAZIDE HYDROCHLORIDE\LEVODOPA
     Indication: Product used for unknown indication
     Dosage: LAST ADMIN DATE 2024
     Route: 048
     Dates: start: 202403
  15. BENSERAZIDE HYDROCHLORIDE\LEVODOPA [Suspect]
     Active Substance: BENSERAZIDE HYDROCHLORIDE\LEVODOPA
     Indication: Product used for unknown indication
     Dosage: TIME INTERVAL: AS NECESSARY: FREQUENCY TEXT: 4/5 MADOPAR A DAY
     Route: 048
     Dates: end: 20240311
  16. BENSERAZIDE HYDROCHLORIDE\LEVODOPA [Suspect]
     Active Substance: BENSERAZIDE HYDROCHLORIDE\LEVODOPA
     Indication: Product used for unknown indication
     Dosage: FIRST ADMIN DATE 2024
     Route: 048
  17. QUETIAPINE [Concomitant]
     Active Substance: QUETIAPINE
     Indication: Product used for unknown indication
  18. QUETIAPINE [Concomitant]
     Active Substance: QUETIAPINE
     Indication: Product used for unknown indication
     Dosage: NOCTE
  19. STALEVO [Concomitant]
     Active Substance: CARBIDOPA\ENTACAPONE\LEVODOPA
     Indication: Product used for unknown indication
     Dosage: TIME INTERVAL: 0.33333333 DAYS: 150MG AT 4AM, 13:15 AND 6PM
  20. STALEVO [Concomitant]
     Active Substance: CARBIDOPA\ENTACAPONE\LEVODOPA
     Indication: Product used for unknown indication
     Dosage: 125MG AT 6AM, 07:30AM, 10AM,12:30PM AND 4PM
  21. SINEMET CR [Concomitant]
     Active Substance: CARBIDOPA\LEVODOPA
     Indication: Product used for unknown indication
     Dosage: 1/2 SINEMET CR, 15/100MG/ 25.1 MG
  22. MIRTAZAPINE [Concomitant]
     Active Substance: MIRTAZAPINE
     Indication: Product used for unknown indication
  23. AMANTADINE [Concomitant]
     Active Substance: AMANTADINE
     Indication: Product used for unknown indication
  24. AZILECT [Concomitant]
     Active Substance: RASAGILINE MESYLATE
     Indication: Product used for unknown indication
  25. SENOKOT [Concomitant]
     Active Substance: SENNOSIDES
     Indication: Product used for unknown indication
  26. LORAZEPAM [Concomitant]
     Active Substance: LORAZEPAM
     Indication: Product used for unknown indication

REACTIONS (28)
  - Psychotic disorder [Not Recovered/Not Resolved]
  - Insomnia [Recovering/Resolving]
  - Off label use [Recovered/Resolved]
  - General symptom [Recovering/Resolving]
  - Malabsorption [Unknown]
  - Device calibration failure [Not Recovered/Not Resolved]
  - Adverse drug reaction [Not Recovered/Not Resolved]
  - Hallucination [Recovered/Resolved]
  - Fall [Recovering/Resolving]
  - Device use issue [Recovered/Resolved]
  - Drug ineffective [Recovering/Resolving]
  - Sleep disorder [Recovering/Resolving]
  - Bowel movement irregularity [Recovered/Resolved]
  - Unevaluable event [Recovering/Resolving]
  - Aggression [Recovered/Resolved]
  - Dry mouth [Not Recovered/Not Resolved]
  - Device dislocation [Recovered/Resolved]
  - Device issue [Recovered/Resolved]
  - Dyskinesia [Recovering/Resolving]
  - Unevaluable event [Recovering/Resolving]
  - On and off phenomenon [Not Recovered/Not Resolved]
  - Dopamine dysregulation syndrome [Recovered/Resolved]
  - Fatigue [Not Recovered/Not Resolved]
  - Paranoia [Not Recovered/Not Resolved]
  - Device alarm issue [Recovering/Resolving]
  - Unevaluable event [Not Recovered/Not Resolved]
  - Mobility decreased [Not Recovered/Not Resolved]
  - Adverse food reaction [Unknown]

NARRATIVE: CASE EVENT DATE: 20231029
